FAERS Safety Report 21838586 (Version 2)
Quarter: 2023Q1

REPORT INFORMATION
  Report Type: Spontaneous
  Country: CA (occurrence: CA)
  Receive Date: 20230109
  Receipt Date: 20230317
  Transmission Date: 20230418
  Serious: Yes (Other)
  Sender: FDA-Public Use
  Company Number: CA-PFIZER INC-PV202300002675

PATIENT
  Age: 77 Year
  Sex: Female
  Weight: 71.6 kg

DRUGS (3)
  1. ZIRABEV [Suspect]
     Active Substance: BEVACIZUMAB-BVZR
     Indication: Ovarian cancer stage III
     Dosage: 537 MG, EVERY 3 WEEKS (7.5MG/KG)
  2. CARBOPLATIN [Concomitant]
     Active Substance: CARBOPLATIN
     Dosage: UNK
  3. PACLITAXEL [Concomitant]
     Active Substance: PACLITAXEL
     Dosage: UNK

REACTIONS (13)
  - Metastases to peritoneum [Unknown]
  - Ascites [Unknown]
  - Pleural effusion [Unknown]
  - Off label use [Unknown]
  - Adnexa uteri mass [Unknown]
  - Superficial vein thrombosis [Unknown]
  - Constipation [Unknown]
  - Oedema peripheral [Unknown]
  - Blood pressure systolic increased [Unknown]
  - Blood pressure decreased [Unknown]
  - Dyspnoea [Unknown]
  - Abdominal pain [Unknown]
  - Abdominal distension [Unknown]

NARRATIVE: CASE EVENT DATE: 20221101
